FAERS Safety Report 4994790-7 (Version None)
Quarter: 2006Q1

REPORT INFORMATION
  Report Type: 
  Country: None (occurrence: None)
  Receive Date: 20060314
  Receipt Date: 20051130
  Transmission Date: 20060701
  Serious: Yes (Other)
  Sender: FDA-Public Use
  Company Number: 200514785BCC

PATIENT
  Age: 30 Year
  Sex: Female
  Weight: 68.0396 kg

DRUGS (2)
  1. ALEVE (CAPLET) [Suspect]
     Indication: RHEUMATOID ARTHRITIS
     Dosage: 880 MG, TOTAL DAILY, ORAL
     Route: 048
     Dates: start: 20020101, end: 20051101
  2. PAXIL [Concomitant]

REACTIONS (5)
  - DYSURIA [None]
  - OLIGURIA [None]
  - RENAL ATROPHY [None]
  - RENAL FAILURE [None]
  - RENAL IMPAIRMENT [None]
